FAERS Safety Report 6785566-9 (Version None)
Quarter: 2010Q2

REPORT INFORMATION
  Report Type: 
  Country: None (occurrence: None)
  Receive Date: 20100623
  Receipt Date: 20100614
  Transmission Date: 20101027
  Serious: Yes (Hospitalization)
  Sender: FDA-Public Use
  Company Number: FR-JNJFOC-20060204410

PATIENT
  Age: 53 Year
  Sex: Male
  Weight: 110 kg

DRUGS (11)
  1. REMICADE [Suspect]
     Indication: ANKYLOSING SPONDYLITIS
     Route: 042
  2. REMICADE [Suspect]
     Route: 042
  3. REMICADE [Suspect]
     Dosage: REINTRODUCED AT A LOWER DOSE.
     Route: 042
  4. REMICADE [Suspect]
     Route: 042
  5. REMICADE [Suspect]
     Route: 042
  6. REMICADE [Suspect]
     Route: 042
  7. REMICADE [Suspect]
     Route: 042
  8. REMICADE [Suspect]
     Route: 042
  9. REMICADE [Suspect]
     Route: 042
  10. CORTANCYL [Suspect]
     Indication: ANKYLOSING SPONDYLITIS
     Route: 048
  11. CORTANCYL [Suspect]
     Route: 048

REACTIONS (1)
  - PNEUMONIA LEGIONELLA [None]
